APPROVED DRUG PRODUCT: METHOXSALEN
Active Ingredient: METHOXSALEN
Strength: 10MG
Dosage Form/Route: CAPSULE;ORAL
Application: A202603 | Product #001
Applicant: ACTAVIS INC
Approved: Jun 9, 2015 | RLD: No | RS: No | Type: DISCN